FAERS Safety Report 15746198 (Version 1)
Quarter: 2018Q4

REPORT INFORMATION
  Report Type: Spontaneous
  Country: MX (occurrence: MX)
  Receive Date: 20181220
  Receipt Date: 20181220
  Transmission Date: 20190205
  Serious: Yes (Life-Threatening, Hospitalization)
  Sender: FDA-Public Use
  Company Number: MX-ENDO PHARMACEUTICALS INC-2018-043479

PATIENT
  Age: 54 Year
  Sex: Female

DRUGS (3)
  1. ACYCLOVIR. [Suspect]
     Active Substance: ACYCLOVIR
     Indication: TOOTH ABSCESS
     Dosage: 400 MG, EVERY 8 HOURS
     Route: 048
  2. CLINDAMYCIN. [Concomitant]
     Active Substance: CLINDAMYCIN
     Indication: TOOTH ABSCESS
  3. DICLOXACILLIN [Concomitant]
     Active Substance: DICLOXACILLIN
     Indication: TOOTH ABSCESS

REACTIONS (4)
  - Hypokalaemia [Recovered/Resolved]
  - Renal tubular necrosis [Unknown]
  - Acute kidney injury [Unknown]
  - Off label use [Unknown]
